FAERS Safety Report 18579495 (Version 6)
Quarter: 2021Q2

REPORT INFORMATION
  Report Type: Spontaneous
  Country: CA (occurrence: CA)
  Receive Date: 20201204
  Receipt Date: 20210505
  Transmission Date: 20210717
  Serious: Yes (Death, Hospitalization, Other)
  Sender: FDA-Public Use
  Company Number: CA-PFIZER INC-2020462967

PATIENT
  Age: 64 Year
  Sex: Male

DRUGS (3)
  1. LORBRENA [Suspect]
     Active Substance: LORLATINIB
     Indication: LUNG NEOPLASM MALIGNANT
     Dosage: 100 MG
     Dates: start: 20201124, end: 2020
  2. LORBRENA [Suspect]
     Active Substance: LORLATINIB
     Dosage: FULL DOSE
     Dates: start: 20201210
  3. LORBRENA [Suspect]
     Active Substance: LORLATINIB
     Dosage: HALF DOSE
     Dates: start: 20201203, end: 202012

REACTIONS (11)
  - Depression [Unknown]
  - Loss of personal independence in daily activities [Not Recovered/Not Resolved]
  - Pain [Unknown]
  - Language disorder [Unknown]
  - Death [Fatal]
  - Epilepsy [Unknown]
  - Skin exfoliation [Unknown]
  - Mental impairment [Unknown]
  - Gait disturbance [Not Recovered/Not Resolved]
  - Muscular weakness [Not Recovered/Not Resolved]
  - Off label use [Unknown]

NARRATIVE: CASE EVENT DATE: 20201124
